FAERS Safety Report 7292733 (Version 3)
Quarter: 2014Q1

REPORT INFORMATION
  Report Type: Spontaneous
  Country: US (occurrence: US)
  Receive Date: 20100224
  Receipt Date: 20140110
  Transmission Date: 20141002
  Serious: No
  Sender: FDA-Public Use
  Company Number: US-JNJFOC-20100206095

PATIENT
  Age: 42 Year
  Sex: Female
  Weight: 51.26 kg

DRUGS (2)
  1. SANDOZ FENTANYL TRANSDERMAL SYSTEM [Suspect]
     Indication: PAIN
     Route: 062
     Dates: start: 20100202
  2. TRAMADOL [Concomitant]
     Indication: PAIN
     Dosage: EVERY 4 TO 6 HOURS
     Route: 048
     Dates: start: 201002

REACTIONS (4)
  - Drug ineffective [Not Recovered/Not Resolved]
  - Product quality issue [Unknown]
  - Pyrexia [Recovered/Resolved]
  - Wrong technique in drug usage process [Recovered/Resolved]
